FAERS Safety Report 24193654 (Version 1)
Quarter: 2024Q3

REPORT INFORMATION
  Report Type: Spontaneous
  Country: FR (occurrence: FR)
  Receive Date: 20240809
  Receipt Date: 20240809
  Transmission Date: 20241017
  Serious: Yes (Hospitalization)
  Sender: RANBAXY
  Company Number: FR-SUN PHARMACEUTICAL INDUSTRIES LTD-2024RR-461748

PATIENT
  Age: 70 Year
  Sex: Male
  Weight: 73 kg

DRUGS (5)
  1. OXALIPLATIN [Suspect]
     Active Substance: OXALIPLATIN
     Indication: Chemotherapy
     Dosage: 165 MILLIGRAM
     Route: 040
     Dates: start: 20240417, end: 20240417
  2. ONDANSETRON [Suspect]
     Active Substance: ONDANSETRON
     Indication: Chemotherapy
     Dosage: 8 MILLIGRAM
     Route: 040
     Dates: start: 20240417, end: 20240417
  3. METHYLPREDNISOLONE [Suspect]
     Active Substance: METHYLPREDNISOLONE
     Indication: Chemotherapy
     Dosage: 80 MILLIGRAM
     Route: 040
     Dates: start: 20240417, end: 20240417
  4. CALCIUM [Suspect]
     Active Substance: CALCIUM
     Indication: Chemotherapy
     Dosage: 40 MILLIGRAM
     Route: 040
     Dates: start: 20240417, end: 20240417
  5. FLUOROURACIL [Suspect]
     Active Substance: FLUOROURACIL
     Indication: Chemotherapy
     Dosage: 390 MILLIGRAM
     Route: 040
     Dates: start: 20240417, end: 20240417

REACTIONS (1)
  - Fixed eruption [Recovering/Resolving]

NARRATIVE: CASE EVENT DATE: 20240418
